FAERS Safety Report 5473064-4 (Version None)
Quarter: 2007Q4

REPORT INFORMATION
  Report Type: 
  Country: None (occurrence: None)
  Receive Date: 20071001
  Receipt Date: 20070330
  Transmission Date: 20080405
  Serious: No
  Sender: FDA-Public Use
  Company Number: US-ASTRAZENECA-2007UW06455

PATIENT
  Age: 61 Year
  Sex: Female
  Weight: 65.8 kg

DRUGS (4)
  1. ARIMIDEX [Suspect]
     Indication: BREAST CANCER
     Route: 048
     Dates: start: 20060301, end: 20070301
  2. TOPROL-XL [Concomitant]
  3. DIOVAN [Concomitant]
  4. CADUET [Concomitant]

REACTIONS (4)
  - ARTHRALGIA [None]
  - MUSCLE INJURY [None]
  - MUSCULOSKELETAL PAIN [None]
  - PERIARTHRITIS [None]
